FAERS Safety Report 7221407-3 (Version None)
Quarter: 2011Q1

REPORT INFORMATION
  Report Type: 
  Country: None (occurrence: None)
  Receive Date: 20110103
  Receipt Date: 20101210
  Transmission Date: 20110831
  Serious: Yes (Hospitalization)
  Sender: FDA-Public Use
  Company Number: ALDI-JP-2010-0064

PATIENT
  Age: 68 Year
  Sex: Male

DRUGS (10)
  1. NOVORAPID (INSULIN ASPART) (INSULIN ASPART) [Concomitant]
  2. LEVEMIR INNOLET (INSULIN DETEMIR) (INSULIN DETEMIR) [Concomitant]
  3. PRORENAL (LIMAPROST) (LIMAPROST) [Concomitant]
  4. NROVASC OD (AMLODIPINE BESILATE) (AMLODIPINE BESILATE) [Concomitant]
  5. ALDOMET [Suspect]
     Indication: HYPERTENSION
     Dosage: 500 MG, ORAL
     Route: 048
     Dates: start: 20090805, end: 20101122
  6. PARIET (RABEPRAZOLE SODIUM) (RABEPRAZOLE SODIUM) [Concomitant]
  7. ASPIRIN [Concomitant]
  8. BLOPRESS (CANDESARTAN CILEXETIL) (CANDESARTAN CILEXETIL) [Concomitant]
  9. PLETAAL OD (CILOSTAZOL) (CILOSTAZOL) [Concomitant]
  10. LIPITOR [Concomitant]

REACTIONS (3)
  - ARTERIOSCLEROSIS OBLITERANS [None]
  - HAEMOLYTIC ANAEMIA [None]
  - OESOPHAGITIS [None]
